FAERS Safety Report 9950037 (Version 1)
Quarter: 2014Q1

REPORT INFORMATION
  Report Type: Spontaneous
  Country: US (occurrence: US)
  Receive Date: 20140304
  Receipt Date: 20140304
  Transmission Date: 20141002
  Serious: No
  Sender: FDA-Public Use
  Company Number: US-ABBVIE-13P-163-1069508-00

PATIENT
  Sex: Female
  Weight: 68.55 kg

DRUGS (1)
  1. HUMIRA [Suspect]
     Indication: RHEUMATOID ARTHRITIS
     Route: 058
     Dates: start: 20080418, end: 20100708

REACTIONS (3)
  - Urticaria [Unknown]
  - Haemorrhage [Unknown]
  - Pruritus [Unknown]
